FAERS Safety Report 5759948-8 (Version None)
Quarter: 2008Q2

REPORT INFORMATION
  Report Type: 
  Country: None (occurrence: None)
  Receive Date: 20080605
  Receipt Date: 20080528
  Transmission Date: 20081010
  Serious: Yes (Death, Hospitalization)
  Sender: FDA-Public Use
  Company Number: CH-ROCHE-565410

PATIENT
  Sex: Male

DRUGS (4)
  1. CAPECITABINE [Suspect]
     Dosage: 650 MG/M2 TWICE DAILY FOR FOURTEEN DAYS EVERY THREE WEEKS FOR SIX CYCLES.
     Route: 048
     Dates: start: 20080421, end: 20080428
  2. OXALIPLATIN [Suspect]
     Dosage: GIVEN AS INFUSION OVER TWO HOURS EVERY THREE WEEKS FOR SIX CYLCLES.
     Route: 042
     Dates: start: 20080421, end: 20080428
  3. GEMCITABINE [Suspect]
     Dosage: GIVEN EVERY THREE WEEKS FOR SIX CYCLES.
     Route: 042
     Dates: start: 20080421, end: 20080428
  4. MORPHINE [Concomitant]
     Route: 042
     Dates: start: 20080505

REACTIONS (1)
  - DISEASE PROGRESSION [None]
